FAERS Safety Report 17673368 (Version 1)
Quarter: 2020Q2

REPORT INFORMATION
  Report Type: Spontaneous
  Country: NZ (occurrence: NZ)
  Receive Date: 20200415
  Receipt Date: 20200415
  Transmission Date: 20200713
  Serious: Yes (Life-Threatening, Hospitalization)
  Sender: FDA-Public Use
  Company Number: NZ-ELI_LILLY_AND_COMPANY-NZ202004005324

PATIENT
  Age: 70 Year
  Sex: Female

DRUGS (2)
  1. PEMETREXED. [Suspect]
     Active Substance: PEMETREXED
     Indication: MESOTHELIOMA
     Dosage: UNK UNK, CYCLICAL
     Route: 065
  2. CARBOPLATIN. [Suspect]
     Active Substance: CARBOPLATIN
     Indication: MESOTHELIOMA
     Dosage: UNK UNK, CYCLICAL
     Route: 065

REACTIONS (4)
  - Seizure [Unknown]
  - Pulmonary embolism [Unknown]
  - Toxic epidermal necrolysis [Unknown]
  - Rash maculo-papular [Unknown]
